FAERS Safety Report 10930802 (Version 2)
Quarter: 2015Q2

REPORT INFORMATION
  Report Type: Spontaneous
  Country: US (occurrence: US)
  Receive Date: 20150319
  Receipt Date: 20150415
  Transmission Date: 20150821
  Serious: No
  Sender: FDA-Public Use
  Company Number: US-GILEAD-2015-0142362

PATIENT
  Age: 63 Year
  Sex: Male

DRUGS (1)
  1. HARVONI [Suspect]
     Active Substance: LEDIPASVIR\SOFOSBUVIR
     Indication: HEPATITIS C
     Dosage: UNK
     Route: 065
     Dates: start: 20141226

REACTIONS (3)
  - Headache [Recovered/Resolved]
  - Arthralgia [Unknown]
  - Fatigue [Recovering/Resolving]

NARRATIVE: CASE EVENT DATE: 201412
